FAERS Safety Report 8878888 (Version 2)
Quarter: 2012Q4

REPORT INFORMATION
  Report Type: 
  Country: GB (occurrence: GB)
  Receive Date: 20121026
  Receipt Date: 20121119
  Transmission Date: 20130627
  Serious: Yes (Death)
  Sender: FDA-Public Use
  Company Number: GB-ACTELION-A-CH2012-73416

PATIENT
  Age: 51 Year
  Sex: Female

DRUGS (2)
  1. TRACLEER [Suspect]
     Indication: IDIOPATHIC PULMONARY FIBROSIS
     Dosage: 125 mg, bid
     Route: 048
     Dates: start: 20100610
  2. TRACLEER [Suspect]
     Dosage: 62.5 mg, bid
     Route: 048
     Dates: start: 20091015, end: 20100609

REACTIONS (1)
  - Interstitial lung disease [Fatal]
